FAERS Safety Report 8559531-5 (Version None)
Quarter: 2012Q3

REPORT INFORMATION
  Report Type: 
  Country: None (occurrence: None)
  Receive Date: 20120802
  Receipt Date: 20120725
  Transmission Date: 20120928
  Serious: Yes (Hospitalization)
  Sender: FDA-Public Use
  Company Number: US-BAYER-2012-076180

PATIENT
  Age: 30 Year
  Sex: Female
  Weight: 102 kg

DRUGS (4)
  1. YAZ [Suspect]
     Indication: CONTRACEPTION
     Dosage: UNK
     Dates: start: 20110102, end: 20111217
  2. PROMETHAZINE W/ CODEINE [Concomitant]
     Dosage: 6.25-10, UNK
     Dates: start: 20110919
  3. ZOLOFT [Concomitant]
     Dosage: 100 MG, UNK
     Dates: start: 20090812, end: 20120421
  4. AZITHROMYCIN [Concomitant]
     Dosage: 250 MG, UNK
     Dates: start: 20110919

REACTIONS (2)
  - DYSPNOEA [None]
  - PULMONARY EMBOLISM [None]
